FAERS Safety Report 13701716 (Version 1)
Quarter: 2017Q2

REPORT INFORMATION
  Report Type: Report from Study
  Country: US (occurrence: US)
  Receive Date: 20170629
  Receipt Date: 20170629
  Transmission Date: 20170830
  Serious: Yes (Other)
  Sender: FDA-Public Use
  Company Number: US-JNJFOC-20170625336

PATIENT
  Sex: Female

DRUGS (13)
  1. IMBRUVICA [Suspect]
     Active Substance: IBRUTINIB
     Indication: HAEMOLYTIC ANAEMIA
     Route: 048
     Dates: start: 20170225
  2. PREDNISOLONE. [Concomitant]
     Active Substance: PREDNISOLONE
  3. PANTOPRAZOLE SODIUM. [Concomitant]
     Active Substance: PANTOPRAZOLE SODIUM
  4. HYDROCODONE [Concomitant]
     Active Substance: HYDROCODONE
  5. CRESTOR [Concomitant]
     Active Substance: ROSUVASTATIN CALCIUM
  6. WARFARIN [Concomitant]
     Active Substance: WARFARIN
  7. ACETAMINOPHEN. [Concomitant]
     Active Substance: ACETAMINOPHEN
  8. IMBRUVICA [Suspect]
     Active Substance: IBRUTINIB
     Indication: HAEMOLYTIC ANAEMIA
     Route: 048
  9. CARVEDILOL. [Concomitant]
     Active Substance: CARVEDILOL
  10. POTASSIUM [Concomitant]
     Active Substance: POTASSIUM
  11. LEVOTHYROXIN [Concomitant]
     Active Substance: LEVOTHYROXINE
  12. ACYCLOVIR. [Concomitant]
     Active Substance: ACYCLOVIR
  13. FOLIC ACID. [Concomitant]
     Active Substance: FOLIC ACID

REACTIONS (5)
  - Adverse event [Recovering/Resolving]
  - Renal disorder [Unknown]
  - Off label use [Unknown]
  - Product use in unapproved indication [Unknown]
  - Drug dose omission [Unknown]
